FAERS Safety Report 12734037 (Version 1)
Quarter: 2016Q3

REPORT INFORMATION
  Report Type: Spontaneous
  Country: BR (occurrence: BR)
  Receive Date: 20160912
  Receipt Date: 20160912
  Transmission Date: 20161109
  Serious: Yes (Hospitalization, Other)
  Sender: FDA-Public Use
  Company Number: BR-ELI_LILLY_AND_COMPANY-BR201609001259

PATIENT
  Sex: Male
  Weight: 90 kg

DRUGS (5)
  1. JARDIANCE [Concomitant]
     Active Substance: EMPAGLIFLOZIN
     Indication: GLUCOSE URINE
     Dosage: UNK, UNKNOWN
     Dates: start: 201608
  2. LANTUS [Concomitant]
     Active Substance: INSULIN GLARGINE
     Indication: PRODUCT USED FOR UNKNOWN INDICATION
     Dosage: UNK, UNKNOWN
  3. MYFORTIC [Concomitant]
     Active Substance: MYCOPHENOLATE SODIUM
     Indication: PRODUCT USED FOR UNKNOWN INDICATION
     Dosage: UNK, UNKNOWN
  4. TRADJENTA [Concomitant]
     Active Substance: LINAGLIPTIN
     Indication: PANCREATIC DISORDER
     Dosage: UNK, UNKNOWN
     Dates: start: 2015
  5. HUMALOG [Suspect]
     Active Substance: INSULIN LISPRO
     Indication: PRODUCT USED FOR UNKNOWN INDICATION
     Dosage: UNK, UNKNOWN
     Route: 065

REACTIONS (7)
  - Liver transplant rejection [Recovering/Resolving]
  - Renal failure [Recovering/Resolving]
  - Dysphonia [Unknown]
  - Hypoacusis [Not Recovered/Not Resolved]
  - Haemochromatosis [Recovering/Resolving]
  - Cytomegalovirus infection [Recovering/Resolving]
  - Visual impairment [Not Recovered/Not Resolved]
